FAERS Safety Report 6220630-4 (Version None)
Quarter: 2009Q2

REPORT INFORMATION
  Report Type: 
  Country: None (occurrence: None)
  Receive Date: 20090610
  Receipt Date: 20090609
  Transmission Date: 20091009
  Serious: Yes (Hospitalization)
  Sender: FDA-Public Use
  Company Number: TW-ROCHE-633573

PATIENT
  Sex: Male
  Weight: 47 kg

DRUGS (5)
  1. CAPECITABINE [Suspect]
     Indication: METASTATIC GASTRIC CANCER
     Dosage: DOSAGE FORM: FILM COATED TABLET.
     Route: 048
     Dates: start: 20081203
  2. ELOXATIN [Suspect]
     Indication: METASTATIC GASTRIC CANCER
     Dosage: DOSAGE FORM: INFUSION.
     Route: 042
     Dates: start: 20081203
  3. METOCLOPRAMIDE [Concomitant]
     Dates: start: 20081203, end: 20090112
  4. PROCHLORPERAZINE [Concomitant]
     Dates: start: 20081203, end: 20090112
  5. TROPISETRON [Concomitant]
     Dates: start: 20081203, end: 20090112

REACTIONS (5)
  - HYPOKALAEMIA [None]
  - HYPONATRAEMIA [None]
  - LEUKOCYTOSIS [None]
  - PNEUMONIA [None]
  - RESPIRATORY FAILURE [None]
